FAERS Safety Report 4584332-2 (Version None)
Quarter: 2005Q1

REPORT INFORMATION
  Report Type: 
  Country: None (occurrence: None)
  Receive Date: 20050216
  Receipt Date: 20050208
  Transmission Date: 20050727
  Serious: Yes (Death, Other)
  Sender: FDA-Public Use
  Company Number: PHBS2005TR02159

PATIENT
  Age: 7 Year
  Sex: Female

DRUGS (5)
  1. CYCLOSPORINE [Suspect]
     Indication: BONE MARROW TRANSPLANT
     Route: 065
  2. METHOTREXATE [Concomitant]
  3. BUSULFAN [Concomitant]
  4. CYCLOPHOSPHAMIDE [Concomitant]
  5. ATGAM [Concomitant]

REACTIONS (11)
  - BLOOD SODIUM DECREASED [None]
  - CEREBRAL ATROPHY [None]
  - DRUG LEVEL INCREASED [None]
  - ENCEPHALOPATHY [None]
  - EPISTAXIS [None]
  - GRAFT VERSUS HOST DISEASE [None]
  - GRAND MAL CONVULSION [None]
  - KRABBE'S DISEASE [None]
  - MULTI-ORGAN FAILURE [None]
  - NEUROTOXICITY [None]
  - SUBDURAL HAEMATOMA [None]
